FAERS Safety Report 18243646 (Version 1)
Quarter: 2020Q3

REPORT INFORMATION
  Report Type: Spontaneous
  Country: FR (occurrence: FR)
  Receive Date: 20200908
  Receipt Date: 20200908
  Transmission Date: 20201103
  Serious: Yes (Other)
  Sender: FDA-Public Use
  Company Number: FR-MYLANLABS-2020M1076581

PATIENT
  Age: 65 Year
  Sex: Male

DRUGS (1)
  1. PEGFILGRASTIM [Suspect]
     Active Substance: PEGFILGRASTIM
     Indication: FEBRILE NEUTROPENIA
     Dosage: UNK

REACTIONS (3)
  - Viral infection [Unknown]
  - Neuropathy peripheral [Unknown]
  - Nail dystrophy [Unknown]

NARRATIVE: CASE EVENT DATE: 20200622
